FAERS Safety Report 7598384-9 (Version None)
Quarter: 2011Q3

REPORT INFORMATION
  Report Type: 
  Country: None (occurrence: None)
  Receive Date: 20110708
  Receipt Date: 20110629
  Transmission Date: 20111222
  Serious: Yes (Hospitalization)
  Sender: FDA-Public Use
  Company Number: KR-MPIJNJ-2011-02622

PATIENT

DRUGS (4)
  1. PREDNISOLONE [Suspect]
     Indication: MULTIPLE MYELOMA
     Dosage: 90 MG, UNK
     Route: 048
     Dates: start: 20110525, end: 20110528
  2. DURAGESIC-100 [Concomitant]
     Dosage: 25 UG, UNK
     Dates: start: 20110609
  3. VELCADE [Suspect]
     Indication: MULTIPLE MYELOMA
     Dosage: 2 MG, CYCLIC
     Route: 042
     Dates: start: 20110525, end: 20110604
  4. MELPHALAN HYDROCHLORIDE [Suspect]
     Indication: MULTIPLE MYELOMA
     Dosage: 14 MG, UNK
     Route: 048
     Dates: start: 20110525, end: 20110528

REACTIONS (2)
  - PERIPHERAL SENSORIMOTOR NEUROPATHY [None]
  - PNEUMONIA [None]
